FAERS Safety Report 11310087 (Version 2)
Quarter: 2015Q3

REPORT INFORMATION
  Report Type: Spontaneous
  Country: US (occurrence: US)
  Receive Date: 20150724
  Receipt Date: 20150914
  Transmission Date: 20151125
  Serious: Yes (Other)
  Sender: FDA-Public Use
  Company Number: US-ENDO PHARMACEUTICALS INC.-2015-001920

PATIENT
  Age: 54 Year
  Sex: Male
  Weight: 79.45 kg

DRUGS (1)
  1. XIAFLEX [Suspect]
     Active Substance: COLLAGENASE CLOSTRIDIUM HISTOLYTICUM
     Indication: PEYRONIE^S DISEASE
     Dosage: 0.58 MG 3 DOSES EVERY 6 WEEKS
     Route: 026
     Dates: start: 20150520, end: 20150720

REACTIONS (3)
  - Penile swelling [Unknown]
  - Penile haematoma [Recovering/Resolving]
  - Pain [Recovered/Resolved]

NARRATIVE: CASE EVENT DATE: 201507
